FAERS Safety Report 6575293-5 (Version None)
Quarter: 2010Q1

REPORT INFORMATION
  Report Type: 
  Country: None (occurrence: None)
  Receive Date: 20100209
  Receipt Date: 20100203
  Transmission Date: 20100710
  Serious: Yes (Death)
  Sender: FDA-Public Use
  Company Number: US-ROCHE-679670

PATIENT
  Sex: Male

DRUGS (1)
  1. VALGANCICLOVIR HCL [Suspect]
     Indication: CYTOMEGALOVIRUS INFECTION
     Route: 065
     Dates: start: 20090709, end: 20091209

REACTIONS (2)
  - ARRHYTHMIA [None]
  - CARDIAC ARREST [None]
